FAERS Safety Report 4274795-4 (Version None)
Quarter: 2004Q1

REPORT INFORMATION
  Report Type: 
  Country: None (occurrence: None)
  Receive Date: 20040116
  Receipt Date: 20040108
  Transmission Date: 20041129
  Serious: Yes (Other)
  Sender: FDA-Public Use
  Company Number: HQWYE210009JAN04

PATIENT
  Age: 38 Year
  Sex: Male

DRUGS (4)
  1. ESANBUTOL (ETHAMBUTOL, TABLET) [Suspect]
     Indication: PULMONARY TUBERCULOSIS
     Dosage: 750 MG DAILY
     Route: 048
     Dates: start: 20031218, end: 20031228
  2. RIFAMPICIN [Concomitant]
  3. ISONIAZID [Concomitant]
  4. PYRAZINAMIDE [Concomitant]

REACTIONS (2)
  - EXANTHEM [None]
  - PYREXIA [None]
